FAERS Safety Report 5378977-X (Version None)
Quarter: 2007Q2

REPORT INFORMATION
  Report Type: 
  Country: None (occurrence: None)
  Receive Date: 20070530
  Receipt Date: 20070220
  Transmission Date: 20071010
  Serious: No
  Sender: FDA-Public Use
  Company Number: 2007PV030382

PATIENT
  Age: 73 Year
  Sex: Male
  Weight: 91.173 kg

DRUGS (9)
  1. BYETTA [Suspect]
     Indication: DIABETES MELLITUS NON-INSULIN-DEPENDENT
     Dosage: 10 MCG;BID;SC, 5 MCG;BID;SC
     Route: 058
     Dates: start: 20061101, end: 20061201
  2. BYETTA [Suspect]
     Indication: DIABETES MELLITUS NON-INSULIN-DEPENDENT
     Dosage: 10 MCG;BID;SC, 5 MCG;BID;SC
     Route: 058
     Dates: start: 20061201
  3. MICARDIS [Concomitant]
  4. CRESTOR [Concomitant]
  5. MOBIC [Concomitant]
  6. NORVASC [Concomitant]
  7. FUROSEMIDE [Concomitant]
  8. FISH OIL [Concomitant]
  9. GLUCOSAMINE [Concomitant]

REACTIONS (5)
  - CHILLS [None]
  - DECREASED APPETITE [None]
  - DYSPHAGIA [None]
  - EARLY SATIETY [None]
  - WEIGHT DECREASED [None]
